FAERS Safety Report 10297282 (Version 6)
Quarter: 2014Q4

REPORT INFORMATION
  Report Type: Spontaneous
  Country: JP (occurrence: JP)
  Receive Date: 20140711
  Receipt Date: 20141009
  Transmission Date: 20150528
  Serious: Yes (Death)
  Sender: FDA-Public Use
  Company Number: JP-BRISTOL-MYERS SQUIBB COMPANY-21180203

PATIENT
  Age: 70 Year
  Sex: Male
  Weight: 39 kg

DRUGS (10)
  1. ERBITUX [Suspect]
     Active Substance: CETUXIMAB
     Indication: LIP AND/OR ORAL CAVITY CANCER
     Dosage: 3TIME (350 MG,L IN 1 WK)?5 TIME (360 MG,L IN 1 WK)
     Route: 041
     Dates: start: 20140428, end: 20140623
  2. CISPLATIN. [Suspect]
     Active Substance: CISPLATIN
     Indication: LIP AND/OR ORAL CAVITY CANCER
     Dosage: 150 MGX3 DAYS IA,24OCT13-21NOV13?100MG/80MGX1MONTH 28APR14-2MAY14
     Route: 041
     Dates: start: 20130902, end: 20140602
  3. MAGLAX [Concomitant]
     Active Substance: MAGNESIUM OXIDE
  4. CIPROXAN [Suspect]
     Active Substance: CIPROFLOXACIN
     Indication: INFECTION PROPHYLAXIS
     Dosage: 26JUN14
     Route: 048
     Dates: start: 20140430, end: 20140630
  5. NOVAMIN [Suspect]
     Active Substance: PROCHLORPERAZINE MALEATE
     Indication: PROPHYLAXIS OF NAUSEA AND VOMITING
     Route: 048
     Dates: start: 20140423, end: 20140627
  6. PRIMPERAN [Suspect]
     Active Substance: METOCLOPRAMIDE HYDROCHLORIDE
     Indication: PROPHYLAXIS OF NAUSEA AND VOMITING
     Dosage: 10 MGX2/DAY IV
     Route: 048
     Dates: start: 20140423, end: 20140627
  7. CALONAL [Suspect]
     Active Substance: ACETAMINOPHEN
     Route: 048
     Dates: start: 20140428, end: 20140630
  8. FENTANYL. [Concomitant]
     Active Substance: FENTANYL
  9. BIOFERMIN [Concomitant]
     Active Substance: BACILLUS SUBTILIS\LACTOBACILLUS ACIDOPHILUS\STREPTOCOCCUS FAECAIS
  10. 5-FLUOROURACIL [Suspect]
     Active Substance: FLUOROURACIL
     Indication: LIP AND/OR ORAL CAVITY CANCER
     Dosage: 02JUN14-06JUN14
     Route: 042
     Dates: start: 20140428, end: 20140502

REACTIONS (2)
  - Hyperkalaemia [Fatal]
  - Rhabdomyolysis [Fatal]

NARRATIVE: CASE EVENT DATE: 201406
